FAERS Safety Report 25976628 (Version 1)
Quarter: 2025Q4

REPORT INFORMATION
  Report Type: Report from Study
  Country: US (occurrence: US)
  Receive Date: 20251029
  Receipt Date: 20251029
  Transmission Date: 20260118
  Serious: Yes (Hospitalization)
  Sender: GILEAD
  Company Number: US-GILEAD-2025-0733903

PATIENT
  Sex: Female

DRUGS (1)
  1. AZTREONAM LYSINE [Suspect]
     Active Substance: AZTREONAM LYSINE
     Indication: Product used for unknown indication
     Dosage: INHALE 75 MG 3 TIMES DAILY, 28 DAYS ON, 28 DAYS OFF.
     Route: 055

REACTIONS (5)
  - Chills [Unknown]
  - Dyspnoea [Unknown]
  - Pyrexia [Unknown]
  - Oropharyngeal candidiasis [Unknown]
  - Throat irritation [Unknown]
